FAERS Safety Report 6671887-7 (Version None)
Quarter: 2010Q2

REPORT INFORMATION
  Report Type: 
  Country: None (occurrence: None)
  Receive Date: 20100407
  Receipt Date: 20100326
  Transmission Date: 20101027
  Serious: Yes (Hospitalization, Other)
  Sender: FDA-Public Use
  Company Number: US-PFIZER INC-2010039541

PATIENT

DRUGS (1)
  1. CHANTIX [Suspect]
     Dosage: UNK
     Dates: start: 20080101

REACTIONS (7)
  - ANXIETY [None]
  - CARBON MONOXIDE POISONING [None]
  - DEPRESSION [None]
  - INTENTIONAL OVERDOSE [None]
  - MOOD SWINGS [None]
  - PARANOIA [None]
  - SUICIDE ATTEMPT [None]
